FAERS Safety Report 5465373-X (Version None)
Quarter: 2007Q3

REPORT INFORMATION
  Report Type: 
  Country: None (occurrence: None)
  Receive Date: 20070920
  Receipt Date: 20070905
  Transmission Date: 20080115
  Serious: Yes (Hospitalization)
  Sender: FDA-Public Use
  Company Number: 2007BI003795

PATIENT
  Sex: Female
  Weight: 72.5755 kg

DRUGS (1)
  1. NATALIZUMAB [Suspect]
     Indication: MULTIPLE SCLEROSIS
     Dosage: 300 MG; QM; IV
     Route: 030
     Dates: start: 20061219, end: 20070509

REACTIONS (15)
  - ARTHRITIS [None]
  - ASTHENIA [None]
  - CHOLECYSTITIS [None]
  - COGNITIVE DISORDER [None]
  - COORDINATION ABNORMAL [None]
  - DRUG HYPERSENSITIVITY [None]
  - DYSARTHRIA [None]
  - INFUSION RELATED REACTION [None]
  - LUPUS-LIKE SYNDROME [None]
  - PARAESTHESIA [None]
  - PHARYNGITIS [None]
  - PRURITUS [None]
  - SICCA SYNDROME [None]
  - SJOGREN'S SYNDROME [None]
  - SKIN DISORDER [None]
